FAERS Safety Report 9436720 (Version 2)
Quarter: 2013Q4

REPORT INFORMATION
  Report Type: Report from Study
  Country: JP (occurrence: JP)
  Receive Date: 20130802
  Receipt Date: 20131203
  Transmission Date: 20140711
  Serious: Yes (Hospitalization)
  Sender: FDA-Public Use
  Company Number: JP-JNJFOC-20130716608

PATIENT
  Age: 26 Year
  Sex: Female
  Weight: 47 kg

DRUGS (9)
  1. SIMPONI [Suspect]
     Indication: RHEUMATOID ARTHRITIS
     Route: 058
     Dates: start: 20130520
  2. SIMPONI [Suspect]
     Indication: RHEUMATOID ARTHRITIS
     Route: 058
     Dates: start: 20121214, end: 20121214
  3. SIMPONI [Suspect]
     Indication: RHEUMATOID ARTHRITIS
     Route: 058
     Dates: start: 20130318, end: 20130318
  4. SIMPONI [Suspect]
     Indication: RHEUMATOID ARTHRITIS
     Route: 058
     Dates: start: 20130422, end: 20130422
  5. METHOTREXATE [Concomitant]
     Indication: RHEUMATOID ARTHRITIS
     Route: 065
  6. MUCOSTA [Concomitant]
     Indication: PROPHYLAXIS
     Route: 065
  7. GASTER D [Concomitant]
     Indication: PROPHYLAXIS
     Route: 048
  8. ISCOTIN [Concomitant]
     Indication: PROPHYLAXIS
     Route: 065
  9. PYDOXAL [Concomitant]
     Indication: PROPHYLAXIS
     Route: 065

REACTIONS (1)
  - Salpingo-oophoritis [Recovered/Resolved]
